FAERS Safety Report 7021127-4 (Version None)
Quarter: 2010Q3

REPORT INFORMATION
  Report Type: 
  Country: None (occurrence: None)
  Receive Date: 20100927
  Receipt Date: 20100916
  Transmission Date: 20110219
  Serious: Yes (Hospitalization)
  Sender: FDA-Public Use
  Company Number: 8034874

PATIENT
  Sex: Female
  Weight: 61 kg

DRUGS (8)
  1. CERTOLIZUMAB PEGOL (CERTOLIZUMAB PEGOL) [Suspect]
     Indication: RHEUMATOID ARTHRITIS
     Dosage: SEE IMAGE
     Route: 058
     Dates: start: 20051209, end: 20060526
  2. CERTOLIZUMAB PEGOL (CERTOLIZUMAB PEGOL) [Suspect]
     Indication: RHEUMATOID ARTHRITIS
     Dosage: SEE IMAGE
     Route: 058
     Dates: start: 20060526, end: 20080414
  3. CERTOLIZUMAB PEGOL (CERTOLIZUMAB PEGOL) [Suspect]
     Indication: RHEUMATOID ARTHRITIS
     Dosage: SEE IMAGE
     Route: 058
     Dates: start: 20080507, end: 20100702
  4. METHOTREXATE [Concomitant]
  5. MEDROL [Concomitant]
  6. DICLOFENAC SODIUM [Concomitant]
  7. ANOPYRIN [Concomitant]
  8. RENPRESS [Concomitant]

REACTIONS (7)
  - ANGINA PECTORIS [None]
  - DYSPNOEA EXERTIONAL [None]
  - MITRAL VALVE INCOMPETENCE [None]
  - MYOCARDIAL ISCHAEMIA [None]
  - OSTEOARTHRITIS [None]
  - SUDDEN DEATH [None]
  - TRICUSPID VALVE INCOMPETENCE [None]
